FAERS Safety Report 9580675 (Version 2)
Quarter: 2013Q4

REPORT INFORMATION
  Report Type: Spontaneous
  Country: US (occurrence: None)
  Receive Date: 20130930
  Receipt Date: 20131022
  Transmission Date: 20140711
  Serious: Yes (Hospitalization)
  Sender: FDA-Public Use
  Company Number: 2013-1241

PATIENT
  Age: 78 Year
  Sex: Male

DRUGS (7)
  1. KYPROLIS [Suspect]
     Indication: PLASMA CELL MYELOMA
     Dosage: 2 IN 1 WK, IV
     Route: 042
     Dates: start: 20130701
  2. DECADRON (DEXAMETHASONE) (DEXAMETHASONE) [Concomitant]
  3. FLOMAX (MORNIFLUMATE) (MORNIFLUMATE) [Concomitant]
  4. STEROID (NULL) (NULL) [Concomitant]
  5. LASIX (FUROSEMIDE) (FUROSEMIDE) [Concomitant]
  6. VANCOMYCIN (VANCOMYCIN) (VANCOMYCIN) [Concomitant]
  7. COUMADIN (WARFARIN SODIUM) (WARFARIN SODIUM) [Concomitant]

REACTIONS (13)
  - Hernia [None]
  - Fatigue [None]
  - Nausea [None]
  - Vomiting [None]
  - Swelling face [None]
  - Local swelling [None]
  - Muscular weakness [None]
  - Fall [None]
  - Dehydration [None]
  - Blood sodium decreased [None]
  - Diarrhoea [None]
  - Myopathy [None]
  - Ammonia increased [None]
